FAERS Safety Report 9755241 (Version 1)
Quarter: 2013Q4

REPORT INFORMATION
  Report Type: Spontaneous
  Country: US (occurrence: US)
  Receive Date: 20131213
  Receipt Date: 20131213
  Transmission Date: 20140711
  Serious: No
  Sender: FDA-Public Use
  Company Number: US-GLAXOSMITHKLINE-A1014684A

PATIENT
  Age: 57 Year
  Sex: Male

DRUGS (3)
  1. NICODERM CQ 14MG [Suspect]
     Indication: PRODUCT USED FOR UNKNOWN INDICATION
  2. NICODERM CQ CLEAR 7MG [Suspect]
     Indication: EX-TOBACCO USER
     Dates: start: 20130302
  3. UNSPECIFIED MEDICATIONS [Concomitant]

REACTIONS (3)
  - Application site paraesthesia [Recovered/Resolved]
  - Application site paraesthesia [Unknown]
  - Drug administration error [Unknown]
